FAERS Safety Report 25285217 (Version 2)
Quarter: 2025Q3

REPORT INFORMATION
  Report Type: Spontaneous
  Country: EU (occurrence: EU)
  Receive Date: 20250509
  Receipt Date: 20250809
  Transmission Date: 20251021
  Serious: Yes (Other)
  Sender: ALEXION PHARMACEUTICALS
  Company Number: None

PATIENT
  Age: 75 Year
  Sex: Female
  Weight: 85 kg

DRUGS (3)
  1. IMFINZI [Suspect]
     Active Substance: DURVALUMAB
     Indication: Biliary neoplasm
     Dates: start: 20241219, end: 20250327
  2. CISPLATIN [Concomitant]
     Active Substance: CISPLATIN
     Indication: Biliary neoplasm
  3. GEMCITABINE [Concomitant]
     Active Substance: GEMCITABINE
     Indication: Biliary neoplasm

REACTIONS (1)
  - Actinic keratosis [Not Recovered/Not Resolved]

NARRATIVE: CASE EVENT DATE: 20250312
